FAERS Safety Report 7077909-6 (Version None)
Quarter: 2010Q4

REPORT INFORMATION
  Report Type: 
  Country: None (occurrence: None)
  Receive Date: 20101101
  Receipt Date: 20101008
  Transmission Date: 20110411
  Serious: Yes (Congenital Anomaly)
  Sender: FDA-Public Use
  Company Number: PHHY2010JP68836

PATIENT

DRUGS (1)
  1. FEMARA [Suspect]
     Dosage: UNK
     Route: 064

REACTIONS (3)
  - CONGENITAL BLADDER ANOMALY [None]
  - CONGENITAL CARDIOVASCULAR ANOMALY [None]
  - DRUG EXPOSURE BEFORE PREGNANCY [None]
